FAERS Safety Report 6289085-8 (Version None)
Quarter: 2009Q3

REPORT INFORMATION
  Report Type: 
  Country: None (occurrence: None)
  Receive Date: 20090729
  Receipt Date: 20090716
  Transmission Date: 20100115
  Serious: Yes (Hospitalization)
  Sender: FDA-Public Use
  Company Number: FR-ASTRAZENECA-2009SE05134

PATIENT
  Age: 65 Year
  Sex: Female

DRUGS (4)
  1. ARIMIDEX [Suspect]
     Indication: BREAST CANCER
     Route: 048
     Dates: start: 20050101, end: 20090501
  2. LOPRESSOR [Concomitant]
  3. FLECAINIDE ACETATE [Concomitant]
  4. FIXICAL [Concomitant]

REACTIONS (1)
  - TENDON RUPTURE [None]
